FAERS Safety Report 7417004-7 (Version None)
Quarter: 2011Q2

REPORT INFORMATION
  Report Type: 
  Country: None (occurrence: None)
  Receive Date: 20110406
  Receipt Date: 20110322
  Transmission Date: 20111010
  Serious: Yes (Hospitalization, Other)
  Sender: FDA-Public Use
  Company Number: AUR-APL-2011-01096

PATIENT
  Age: 64 Year
  Sex: Male

DRUGS (6)
  1. RAMIPRIL [Suspect]
     Indication: HYPERTENSION
     Dosage: 2.5MG-DAILY-ORAL
     Route: 048
     Dates: start: 20090326
  2. BISOPROLOL FUMARATE [Suspect]
     Indication: HYPERTENSION
     Dosage: 5MG-DAILY-ORAL
     Route: 048
     Dates: start: 20090122, end: 20090513
  3. BETA BLOCKING AGENTS [Concomitant]
  4. SIMVASTATIN [Suspect]
     Indication: HYPERCHOLESTEROLAEMIA
     Dosage: 20MG-DAILY-ORAL
     Route: 048
     Dates: start: 20090326
  5. ACE INHIBITORS [Concomitant]
  6. ANGIOTENSIN 11 ANTAGONISTS [Concomitant]

REACTIONS (3)
  - TRANSIENT ISCHAEMIC ATTACK [None]
  - CEREBROVASCULAR ACCIDENT [None]
  - FALL [None]
